FAERS Safety Report 4984625-0 (Version None)
Quarter: 2006Q2

REPORT INFORMATION
  Report Type: 
  Country: None (occurrence: None)
  Receive Date: 20060427
  Receipt Date: 20050915
  Transmission Date: 20061013
  Serious: Yes (Hospitalization)
  Sender: FDA-Public Use
  Company Number: NO-MERCK-0509NOR00017

PATIENT
  Age: 71 Year
  Sex: Female

DRUGS (6)
  1. VIOXX [Suspect]
     Indication: OSTEOARTHRITIS
     Route: 048
     Dates: start: 20020409, end: 20040930
  2. METHYLPHENIDATE HYDROCHLORIDE [Concomitant]
     Indication: SOMNOLENCE
     Route: 065
     Dates: start: 19990101
  3. METHYLPHENIDATE HYDROCHLORIDE [Concomitant]
     Indication: NARCOLEPSY
     Route: 065
     Dates: start: 19990101
  4. IRBESARTAN [Concomitant]
     Indication: HYPERTENSION
     Route: 065
     Dates: start: 20000425
  5. ATORVASTATIN CALCIUM [Concomitant]
     Indication: HYPERLIPIDAEMIA
     Route: 065
     Dates: start: 20001120
  6. ASPIRIN AND MAGNESIUM OXIDE [Concomitant]
     Indication: PROPHYLAXIS
     Route: 065
     Dates: start: 20000425

REACTIONS (2)
  - BRAIN STEM INFARCTION [None]
  - HYPOXIA [None]
